FAERS Safety Report 8160434-9 (Version None)
Quarter: 2012Q1

REPORT INFORMATION
  Report Type: 
  Country: None (occurrence: None)
  Receive Date: 20120223
  Receipt Date: 20120222
  Transmission Date: 20120608
  Serious: No
  Sender: FDA-Public Use
  Company Number: US-B.I. PHARMACEUTICALS,INC./RIDGEFIELD-2012-BP-03466BP

PATIENT
  Age: 62 Year
  Sex: Male

DRUGS (2)
  1. TRADJENTA [Suspect]
     Dates: end: 20120101
  2. TRADJENTA [Suspect]
     Route: 048
     Dates: start: 20111001

REACTIONS (2)
  - CONSTIPATION [None]
  - ABDOMINAL PAIN UPPER [None]
